FAERS Safety Report 20975371 (Version 4)
Quarter: 2022Q4

REPORT INFORMATION
  Report Type: Report from Study
  Country: CN (occurrence: CN)
  Receive Date: 20220617
  Receipt Date: 20221108
  Transmission Date: 20230113
  Serious: Yes (Other)
  Sender: FDA-Public Use
  Company Number: CN-BoehringerIngelheim-2022-BI-175363

PATIENT
  Age: 74 Year
  Sex: Female
  Weight: 55 kg

DRUGS (7)
  1. TENECTEPLASE [Suspect]
     Active Substance: TENECTEPLASE
     Indication: Ischaemic stroke
     Route: 042
     Dates: start: 20220602
  2. DIAZEPAM [Concomitant]
     Active Substance: DIAZEPAM
     Indication: Cerebral infarction
     Route: 042
     Dates: start: 20220602, end: 20220604
  3. DIAZEPAM [Concomitant]
     Active Substance: DIAZEPAM
     Indication: Sedation
     Route: 042
     Dates: start: 20220603, end: 20220603
  4. CINEPAZIDE [Concomitant]
     Active Substance: CINEPAZIDE
     Indication: Cerebral infarction
     Route: 042
     Dates: start: 20220602, end: 20220604
  5. BUTYLPHTHALIDE [Concomitant]
     Active Substance: BUTYLPHTHALIDE
     Indication: Cerebral infarction
     Route: 042
     Dates: start: 20220602, end: 20220604
  6. ATORVASTATIN CALCIUM [Concomitant]
     Active Substance: ATORVASTATIN CALCIUM
     Indication: Cerebral infarction
     Route: 048
     Dates: start: 20220604
  7. IDEBENONE [Concomitant]
     Active Substance: IDEBENONE
     Indication: Cerebral infarction
     Route: 048
     Dates: start: 20220604

REACTIONS (3)
  - Cerebral haemorrhage [Recovered/Resolved]
  - Brain oedema [Recovered/Resolved]
  - Subarachnoid haemorrhage [Recovered/Resolved]

NARRATIVE: CASE EVENT DATE: 20220603
